FAERS Safety Report 22053766 (Version 1)
Quarter: 2023Q1

REPORT INFORMATION
  Report Type: Spontaneous
  Country: IT (occurrence: None)
  Receive Date: 20230302
  Receipt Date: 20230302
  Transmission Date: 20230417
  Serious: Yes (Other)
  Sender: FDA-Public Use
  Company Number: 2023A044002

PATIENT
  Age: 80 Year
  Sex: Male
  Weight: 58 kg

DRUGS (1)
  1. IMFINZI [Suspect]
     Active Substance: DURVALUMAB
     Indication: Neoplasm malignant
     Dosage: 500MG/100ML VIAL. 1500MG EVERY 21 DAYS
     Route: 042
     Dates: start: 20230118, end: 20230118

REACTIONS (5)
  - Angioedema [Recovered/Resolved]
  - Abnormal sensation in eye [Recovered/Resolved]
  - Pruritus [Recovered/Resolved]
  - Flushing [Recovering/Resolving]
  - Dermatitis [Recovering/Resolving]

NARRATIVE: CASE EVENT DATE: 20230205
